FAERS Safety Report 6374699-7 (Version None)
Quarter: 2009Q3

REPORT INFORMATION
  Report Type: 
  Country: None (occurrence: None)
  Receive Date: 20090921
  Receipt Date: 20090910
  Transmission Date: 20100115
  Serious: Yes (Death, Hospitalization)
  Sender: FDA-Public Use
  Company Number: 2009AL003853

PATIENT
  Age: 76 Year
  Sex: Male

DRUGS (20)
  1. DIGOXIN [Suspect]
     Dosage: 0.25MG, DAILY, PO
     Route: 048
  2. ASPIRIN [Concomitant]
  3. LISINOPRIL [Concomitant]
  4. BUPROPION HCL [Concomitant]
  5. HYDROCODONE [Concomitant]
  6. NEURONTIN [Concomitant]
  7. PLAVIX [Concomitant]
  8. WELLBUTRIN [Concomitant]
  9. TYLENOL (CAPLET) [Concomitant]
  10. ARICEPT [Concomitant]
  11. ALBUTEROL [Concomitant]
  12. SIMVASTATIN [Concomitant]
  13. MORPHINE SULFATE [Concomitant]
  14. ELAVIL [Concomitant]
  15. VERSED [Concomitant]
  16. PEPCID [Concomitant]
  17. LIDOCAINE [Concomitant]
  18. NITROGLYCERIN [Concomitant]
  19. PHENERGAN [Concomitant]
  20. ACETAMINOPHEN [Concomitant]

REACTIONS (9)
  - CARDIAC FAILURE CONGESTIVE [None]
  - CORONARY ARTERY STENOSIS [None]
  - DYSPNOEA [None]
  - FATIGUE [None]
  - HYPERTENSIVE HEART DISEASE [None]
  - LOSS OF CONSCIOUSNESS [None]
  - PULSE ABSENT [None]
  - RESPIRATORY ARREST [None]
  - SYNCOPE [None]
